FAERS Safety Report 10700380 (Version 1)
Quarter: 2014Q4

REPORT INFORMATION
  Report Type: Spontaneous
  Country: US (occurrence: None)
  Receive Date: 20141223
  Receipt Date: 20141223
  Transmission Date: 20150529
  Serious: No
  Sender: FDA-Public Use
  Company Number: 1000071322

PATIENT
  Age: 80 Year
  Sex: Female

DRUGS (4)
  1. LINZESS [Suspect]
     Active Substance: LINACLOTIDE
     Indication: CONSTIPATION
     Route: 048
     Dates: start: 2014
  2. ARTHRITIS MEDICATION NOS [Concomitant]
  3. HIGH BLOOD PRESSURE MEDICATION NOS [Concomitant]
     Active Substance: UNSPECIFIED INGREDIENT
  4. DIABETES MEDICATION NOS [Concomitant]

REACTIONS (2)
  - Intentional product misuse [None]
  - Off label use [None]

NARRATIVE: CASE EVENT DATE: 2014
